FAERS Safety Report 4833095-1 (Version None)
Quarter: 2005Q4

REPORT INFORMATION
  Report Type: 
  Country: None (occurrence: None)
  Receive Date: 20051121
  Receipt Date: 20040913
  Transmission Date: 20060501
  Serious: Yes (Hospitalization)
  Sender: FDA-Public Use
  Company Number: CA-ROCHE-380368

PATIENT
  Age: 47 Year
  Sex: Female
  Weight: 48.3 kg

DRUGS (11)
  1. DACLIZUMAB [Suspect]
     Indication: PROPHYLAXIS AGAINST TRANSPLANT REJECTION
     Route: 042
     Dates: start: 20040630, end: 20040630
  2. DACLIZUMAB [Suspect]
     Route: 042
     Dates: end: 20040825
  3. MYCOPHENOLATE MOFETIL [Suspect]
     Indication: PROPHYLAXIS AGAINST TRANSPLANT REJECTION
     Route: 048
     Dates: start: 20040630
  4. SIROLIMUS [Suspect]
     Indication: PROPHYLAXIS AGAINST TRANSPLANT REJECTION
     Dosage: REPORTED AS 2MG AND 3MG EVERY OTHER DAY
     Route: 048
     Dates: start: 20040630
  5. CORTICOSTEROIDS [Suspect]
     Indication: PROPHYLAXIS AGAINST TRANSPLANT REJECTION
     Route: 065
  6. ACTONEL [Concomitant]
     Route: 048
     Dates: start: 20040824
  7. COLACE [Concomitant]
     Route: 048
     Dates: start: 20040701
  8. MONOCOR [Concomitant]
     Route: 048
     Dates: start: 20040826
  9. NYSTATINE [Concomitant]
     Route: 048
     Dates: start: 20040703
  10. OSCAL [Concomitant]
     Route: 048
     Dates: start: 20040824
  11. VITAMINE D [Concomitant]
     Route: 048
     Dates: start: 20040823

REACTIONS (3)
  - KLEBSIELLA INFECTION [None]
  - PSEUDOMONAS INFECTION [None]
  - URINARY TRACT INFECTION [None]
